FAERS Safety Report 18740009 (Version 2)
Quarter: 2023Q2

REPORT INFORMATION
  Report Type: Other
  Country: DE (occurrence: None)
  Receive Date: 20210114
  Receipt Date: 20230407
  Transmission Date: 20230721
  Serious: Yes (Death, Life-Threatening, Hospitalization)
  Sender: FDA-Public Use
  Company Number: DE-ROCHE-2749055

PATIENT
  Sex: Male

DRUGS (12)
  1. TOCILIZUMAB [Suspect]
     Active Substance: TOCILIZUMAB
     Indication: Rheumatoid arthritis
     Route: 058
     Dates: end: 20200810
  2. CANDESARTAN [Concomitant]
     Active Substance: CANDESARTAN
  3. FUROSEMIDE [Concomitant]
     Active Substance: FUROSEMIDE
  4. RENVELA [Concomitant]
     Active Substance: SEVELAMER CARBONATE
  5. VITARENAL [Concomitant]
  6. PANTOPRAZOLE [Concomitant]
     Active Substance: PANTOPRAZOLE
  7. NOVORAPID [Concomitant]
     Active Substance: INSULIN ASPART
  8. TOUJEO [Concomitant]
     Active Substance: INSULIN GLARGINE
  9. ASPIRIN [Concomitant]
     Active Substance: ASPIRIN
  10. TAMSULOSIN [Concomitant]
     Active Substance: TAMSULOSIN
  11. SIMVASTATIN [Concomitant]
     Active Substance: SIMVASTATIN
  12. VERAPAMIL [Concomitant]
     Active Substance: VERAPAMIL HYDROCHLORIDE

REACTIONS (3)
  - Cardiac failure [Fatal]
  - Sepsis [Unknown]
  - Pneumonia aspiration [Unknown]

NARRATIVE: CASE EVENT DATE: 20200801
